FAERS Safety Report 5627628-5 (Version None)
Quarter: 2008Q1

REPORT INFORMATION
  Report Type: 
  Country: None (occurrence: None)
  Receive Date: 20080214
  Receipt Date: 20080214
  Transmission Date: 20080703
  Serious: Yes (Hospitalization)
  Sender: FDA-Public Use
  Company Number: None

PATIENT
  Age: 42 Year
  Sex: Male
  Weight: 84.8 kg

DRUGS (1)
  1. IBUPROFEN TABLETS [Suspect]
     Indication: ANALGESIA
     Dates: start: 20080207, end: 20080208

REACTIONS (3)
  - GASTRIC ULCER [None]
  - HAEMATEMESIS [None]
  - HELICOBACTER PYLORI IDENTIFICATION TEST POSITIVE [None]
